FAERS Safety Report 7311493-4 (Version None)
Quarter: 2011Q1

REPORT INFORMATION
  Report Type: 
  Country: None (occurrence: None)
  Receive Date: 20110224
  Receipt Date: 20110218
  Transmission Date: 20110831
  Serious: Yes (Other)
  Sender: FDA-Public Use
  Company Number: PHHY2010BR48929

PATIENT
  Sex: Male
  Weight: 80 kg

DRUGS (3)
  1. EXELON [Suspect]
     Indication: DEMENTIA ALZHEIMER'S TYPE
     Dosage: 18MG/10CM2
     Route: 062
  2. EXELON [Suspect]
     Dosage: 9MG/5CM2
     Route: 062
  3. EXELON [Suspect]
     Dosage: 18MG/10CM^2
     Route: 062

REACTIONS (3)
  - DRUG INEFFECTIVE [None]
  - FEELING ABNORMAL [None]
  - SEDATION [None]
